FAERS Safety Report 9674559 (Version 1)
Quarter: 2013Q4

REPORT INFORMATION
  Report Type: Spontaneous
  Country: FR (occurrence: FR)
  Receive Date: 20131107
  Receipt Date: 20131107
  Transmission Date: 20140711
  Serious: Yes (Hospitalization)
  Sender: FDA-Public Use
  Company Number: FR-009507513-1310FRA013116

PATIENT
  Sex: Female

DRUGS (8)
  1. MAXALT [Suspect]
     Route: 048
  2. MEDIATOR [Suspect]
     Dosage: UNK
     Route: 048
     Dates: start: 2006, end: 2009
  3. ISOMERIDE [Suspect]
     Route: 048
  4. ANOREX (DIETHYLPROPION HYDROCHLORIDE) [Suspect]
     Route: 048
  5. TENUATE DOSPAN [Suspect]
  6. SEGLOR [Suspect]
  7. ZOMIG [Suspect]
  8. NARAMIG [Suspect]

REACTIONS (1)
  - Pulmonary arterial hypertension [Not Recovered/Not Resolved]
